FAERS Safety Report 24374980 (Version 1)
Quarter: 2024Q3

REPORT INFORMATION
  Report Type: Report from Study
  Country: NL (occurrence: NL)
  Receive Date: 20240927
  Receipt Date: 20240927
  Transmission Date: 20241016
  Serious: Yes (Death)
  Sender: ABBVIE
  Company Number: NL-ABBVIE-5941242

PATIENT
  Age: 88 Year
  Sex: Female

DRUGS (4)
  1. DUOPA [Suspect]
     Active Substance: CARBIDOPA\LEVODOPA
     Indication: Parkinson^s disease
     Dosage: MD: 13.0ML, CD: 2.2ML/H, ED: 3.5ML?REMAINS AT 16 HOURS
     Route: 050
     Dates: start: 20230808, end: 20230818
  2. DUOPA [Suspect]
     Active Substance: CARBIDOPA\LEVODOPA
     Dosage: MD: 13.0ML, CD: 2.2ML/H, ED: 3.5ML?REMAINS AT 16 HOURS
     Route: 050
     Dates: start: 20150407, end: 20240923
  3. DUOPA [Suspect]
     Active Substance: CARBIDOPA\LEVODOPA
     Dosage: MD: 13.0ML, CD: 2.4ML/H, ED: 3.3ML?REMAINS AT 16 HOURS
     Route: 050
     Dates: start: 20240206, end: 20240206
  4. DUOPA [Suspect]
     Active Substance: CARBIDOPA\LEVODOPA
     Dosage: REMAINS AT 16 HOURS
     Route: 050
     Dates: start: 20231103, end: 20240206

REACTIONS (1)
  - Fall [Fatal]

NARRATIVE: CASE EVENT DATE: 20240914
